FAERS Safety Report 24343474 (Version 1)
Quarter: 2024Q3

REPORT INFORMATION
  Report Type: Spontaneous
  Country: GR (occurrence: GR)
  Receive Date: 20240920
  Receipt Date: 20240920
  Transmission Date: 20241017
  Serious: Yes (Death, Other)
  Sender: MERCK
  Company Number: GR-MYLANLABS-2024M1082081

PATIENT

DRUGS (2)
  1. TEMOZOLOMIDE [Suspect]
     Active Substance: TEMOZOLOMIDE
     Indication: Neuroblastoma
     Dosage: UNK UNK, QD (150 MILLIGRAMS PER SQUARE METER PER DAY, DAYS 1-5)
     Route: 042
  2. IRINOTECAN [Suspect]
     Active Substance: IRINOTECAN
     Indication: Neuroblastoma
     Dosage: UNK UNK, QD (50 MILLIGRAMS PER SQUARE METER PER DAY, DAYS 1-5)
     Route: 042

REACTIONS (2)
  - Death [Fatal]
  - Off label use [Unknown]
